FAERS Safety Report 6336660-8 (Version None)
Quarter: 2009Q3

REPORT INFORMATION
  Report Type: 
  Country: None (occurrence: None)
  Receive Date: 20090831
  Receipt Date: 20090831
  Transmission Date: 20100115
  Serious: Yes (Hospitalization)
  Sender: FDA-Public Use
  Company Number: None

PATIENT
  Age: 30 Year
  Sex: Male
  Weight: 85.3 kg

DRUGS (1)
  1. EXTENDED PHENYTOIN SODIUM 100MG [Suspect]
     Indication: MYOCLONIC EPILEPSY
     Dosage: 300MG DAILY PO
     Route: 048
     Dates: start: 20090724, end: 20090811

REACTIONS (3)
  - EATING DISORDER [None]
  - STEVENS-JOHNSON SYNDROME [None]
  - VISION BLURRED [None]
